FAERS Safety Report 18314015 (Version 1)
Quarter: 2020Q3

REPORT INFORMATION
  Report Type: Spontaneous
  Country: US (occurrence: US)
  Receive Date: 20200925
  Receipt Date: 20200925
  Transmission Date: 20201103
  Serious: Yes (Other)
  Sender: FDA-Public Use
  Company Number: US-BAYER-2020-198238

PATIENT
  Sex: Female

DRUGS (1)
  1. MILK OF MAGNESIA CHERRY [Suspect]
     Active Substance: MAGNESIUM HYDROXIDE
     Indication: GASTROINTESTINAL DISORDER
     Dosage: UNK (EVERY 3 DAYS)
     Route: 048

REACTIONS (3)
  - Faeces soft [Unknown]
  - Haematochezia [Unknown]
  - Constipation [Unknown]
